FAERS Safety Report 21036795 (Version 1)
Quarter: 2022Q3

REPORT INFORMATION
  Report Type: Spontaneous
  Country: FR (occurrence: None)
  Receive Date: 20220702
  Receipt Date: 20220702
  Transmission Date: 20221027
  Serious: Yes (Death, Hospitalization, Other)
  Sender: FDA-Public Use
  Company Number: FR-MICRO LABS LIMITED-ML2022-03133

PATIENT
  Age: 58 Year
  Sex: Male
  Weight: 106 kg

DRUGS (5)
  1. APIXABAN [Suspect]
     Active Substance: APIXABAN
     Indication: Atrial fibrillation
  2. ATORVASTATIN [Suspect]
     Active Substance: ATORVASTATIN
  3. BISOPROLOL [Suspect]
     Active Substance: BISOPROLOL
  4. EPLERENONE [Suspect]
     Active Substance: EPLERENONE
  5. RAMIPRIL [Suspect]
     Active Substance: RAMIPRIL

REACTIONS (6)
  - Cardiogenic shock [Fatal]
  - Toxicity to various agents [Fatal]
  - Suicide attempt [Unknown]
  - Renal failure [Unknown]
  - Drug interaction [Fatal]
  - Overdose [Fatal]
